FAERS Safety Report 9476070 (Version 1)
Quarter: 2013Q3

REPORT INFORMATION
  Report Type: Spontaneous
  Country: IT (occurrence: None)
  Receive Date: 20130821
  Receipt Date: 20130821
  Transmission Date: 20140515
  Serious: Yes (Other)
  Sender: FDA-Public Use
  Company Number: DSM-2013-00759

PATIENT
  Age: 68 Year
  Sex: Male

DRUGS (2)
  1. PLAUNAZIDE [Suspect]
     Route: 048
     Dates: start: 20091222
  2. GLIBOMET [Concomitant]

REACTIONS (3)
  - Macule [None]
  - Oedema peripheral [None]
  - Skin ulcer [None]
